FAERS Safety Report 15416580 (Version 1)
Quarter: 2018Q4

REPORT INFORMATION
  Report Type: Spontaneous
  Country: US (occurrence: US)
  Receive Date: 20180924
  Receipt Date: 20180924
  Transmission Date: 20190204
  Serious: No
  Sender: FDA-Public Use
  Company Number: US-LUPIN PHARMACEUTICALS INC.-2018-06032

PATIENT
  Age: 68 Year
  Sex: Female
  Weight: 54.42 kg

DRUGS (1)
  1. ARMODAFINIL TABLETS, 250 MG [Suspect]
     Active Substance: ARMODAFINIL
     Indication: NARCOLEPSY
     Dosage: 250 MG, QD
     Route: 048
     Dates: start: 20180806

REACTIONS (3)
  - Product substitution issue [Unknown]
  - Therapeutic response decreased [Unknown]
  - Asthenia [Not Recovered/Not Resolved]

NARRATIVE: CASE EVENT DATE: 20180806
